FAERS Safety Report 6870659-8 (Version None)
Quarter: 2010Q3

REPORT INFORMATION
  Report Type: 
  Country: None (occurrence: None)
  Receive Date: 20100723
  Receipt Date: 20100719
  Transmission Date: 20110219
  Serious: Yes (Death, Hospitalization, Other)
  Sender: FDA-Public Use
  Company Number: PHHY2010BR47593

PATIENT
  Sex: Male

DRUGS (5)
  1. TRILEPTAL [Suspect]
     Indication: CONVULSION
     Dosage: UNK
     Dates: start: 20000101
  2. SINEMET [Concomitant]
     Indication: PARKINSON'S DISEASE
     Dosage: UNK
     Dates: end: 20100624
  3. AKINETON [Concomitant]
     Indication: PARKINSON'S DISEASE
     Dosage: UNK
     Dates: end: 20100624
  4. PROLOPA HBS [Concomitant]
     Indication: PARKINSON'S DISEASE
     Dosage: UNK
     Dates: end: 20100624
  5. FLUIMUCIL [Concomitant]
     Indication: EMPHYSEMA
     Dosage: UNK
     Dates: end: 20100624

REACTIONS (6)
  - AORTIC ANEURYSM [None]
  - FALL [None]
  - HYDROCEPHALUS [None]
  - PAIN [None]
  - PELVIC FRACTURE [None]
  - PULMONARY EMBOLISM [None]
